FAERS Safety Report 6122391-6 (Version None)
Quarter: 2009Q1

REPORT INFORMATION
  Report Type: 
  Country: None (occurrence: None)
  Receive Date: 20090318
  Receipt Date: 20090211
  Transmission Date: 20090719
  Serious: No
  Sender: FDA-Public Use
  Company Number: US-ASTRAZENECA-2009UW04009

PATIENT
  Age: 74 Year
  Sex: Female

DRUGS (2)
  1. SYMBICORT [Suspect]
     Dosage: 160/4.5 UG, 2, BID
     Route: 055
  2. ALBUTEROL [Concomitant]
     Dosage: PRN

REACTIONS (1)
  - OROPHARYNGEAL BLISTERING [None]
